FAERS Safety Report 9465727 (Version 1)
Quarter: 2013Q3

REPORT INFORMATION
  Report Type: Spontaneous
  Country: US (occurrence: US)
  Receive Date: 20130820
  Receipt Date: 20130820
  Transmission Date: 20140515
  Serious: No
  Sender: FDA-Public Use
  Company Number: US-ASTELLAS-2012US012534

PATIENT
  Sex: Male

DRUGS (2)
  1. AMBISOME [Suspect]
     Indication: RECTAL HAEMORRHAGE
     Dosage: 50 MG, UNKNOWN/D
     Route: 042
     Dates: start: 20121112, end: 20121123
  2. AMBISOME [Suspect]
     Indication: ANAL HAEMORRHAGE

REACTIONS (1)
  - Off label use [Unknown]
